FAERS Safety Report 20490901 (Version 2)
Quarter: 2022Q1

REPORT INFORMATION
  Report Type: Spontaneous
  Country: CO (occurrence: CO)
  Receive Date: 20220218
  Receipt Date: 20220322
  Transmission Date: 20220424
  Serious: Yes (Death, Hospitalization, Other)
  Sender: FDA-Public Use
  Company Number: CO-AMGEN-COLSP2021075651

PATIENT
  Age: 39 Year
  Sex: Male
  Weight: 63 kg

DRUGS (8)
  1. MVASI [Suspect]
     Active Substance: BEVACIZUMAB-AWWB
     Indication: Rectal cancer
     Dosage: 305 MILLIGRAM, EVERY 15 DAYS
     Route: 065
     Dates: start: 20210107, end: 20210819
  2. MVASI [Suspect]
     Active Substance: BEVACIZUMAB-AWWB
     Dosage: 457 MILLIGRAM, Q3WK (EVERY 21 DAYS)
     Route: 042
  3. IRINOTECAN [Concomitant]
     Active Substance: IRINOTECAN
     Indication: Rectal cancer
     Dosage: 288 MILLIGRAM, EVERY 15 DAYS
     Dates: start: 20201126, end: 20210819
  4. IRINOTECAN [Concomitant]
     Active Substance: IRINOTECAN
     Dosage: 306 MILLIGRAM, Q3WK
     Dates: end: 20210819
  5. LEUCOVORIN CALCIUM [Concomitant]
     Active Substance: LEUCOVORIN CALCIUM
     Indication: Rectal cancer
     Dosage: 540 MILLIGRAM, EVERY 15 DAYS
     Dates: start: 20201126
  6. LEUCOVORIN CALCIUM [Concomitant]
     Active Substance: LEUCOVORIN CALCIUM
     Dosage: 680 MILLIGRAM, Q3WK
     Dates: end: 20210819
  7. FLUOROURACIL [Concomitant]
     Active Substance: FLUOROURACIL
     Indication: Rectal cancer
     Dosage: 3660 MILLIGRAM, EVERY 15 DAYS
     Dates: start: 20201126
  8. FLUOROURACIL [Concomitant]
     Active Substance: FLUOROURACIL
     Dosage: 4080 MILLIGRAM, Q3WK
     Dates: end: 20210819

REACTIONS (11)
  - Death [Fatal]
  - Hypertension [Recovering/Resolving]
  - Ascites [Unknown]
  - Jaundice [Unknown]
  - Somnolence [Unknown]
  - Inflammation [Unknown]
  - Feeding disorder [Unknown]
  - Gastritis [Unknown]
  - Dehydration [Unknown]
  - Fatigue [Unknown]
  - Headache [Unknown]

NARRATIVE: CASE EVENT DATE: 20210415
